FAERS Safety Report 9335013 (Version 1)
Quarter: 2013Q2

REPORT INFORMATION
  Report Type: Spontaneous
  Country: US (occurrence: US)
  Receive Date: 20130606
  Receipt Date: 20130606
  Transmission Date: 20140414
  Serious: No
  Sender: FDA-Public Use
  Company Number: US-AMGEN-USASP2013026052

PATIENT
  Age: 71 Year
  Sex: Female
  Weight: 51.4 kg

DRUGS (3)
  1. PROLIA [Suspect]
     Indication: OSTEOPOROSIS
     Dosage: 60 UNK, Q6MO
     Route: 058
     Dates: start: 201211, end: 201304
  2. LEVOTHYROXINE [Concomitant]
     Dosage: 88 UNK, QD
     Route: 048
  3. VITAMIN D3 [Concomitant]
     Dosage: 50000 UNK, QD
     Route: 048

REACTIONS (4)
  - Dizziness [Recovered/Resolved]
  - Hypertension [Recovered/Resolved]
  - Pyrexia [Recovered/Resolved]
  - Fatigue [Recovered/Resolved]
